FAERS Safety Report 19743585 (Version 2)
Quarter: 2021Q3

REPORT INFORMATION
  Report Type: Report from Study
  Country: US (occurrence: US)
  Receive Date: 20210824
  Receipt Date: 20210827
  Transmission Date: 20211014
  Serious: No
  Sender: FDA-Public Use
  Company Number: NVSC2021US187557

PATIENT
  Sex: Female

DRUGS (1)
  1. COSENTYX [Suspect]
     Active Substance: SECUKINUMAB
     Indication: PSORIASIS
     Dosage: 300 MG, EVERY WEEK X 5 WEEKS THEN EVERY 4
     Route: 058
     Dates: start: 20210810

REACTIONS (2)
  - Skin fissures [Unknown]
  - Skin plaque [Unknown]
